FAERS Safety Report 7006992-9 (Version None)
Quarter: 2010Q3

REPORT INFORMATION
  Report Type: 
  Country: None (occurrence: None)
  Receive Date: 20100922
  Receipt Date: 20100916
  Transmission Date: 20110219
  Serious: Yes (Death)
  Sender: FDA-Public Use
  Company Number: US-JNJFOC-20100905989

PATIENT
  Sex: Male
  Weight: 58.97 kg

DRUGS (2)
  1. HALDOL [Suspect]
     Indication: PRODUCT USED FOR UNKNOWN INDICATION
     Route: 042
  2. COUMADIN [Concomitant]
     Route: 048

REACTIONS (2)
  - DEATH [None]
  - INCORRECT ROUTE OF DRUG ADMINISTRATION [None]
